FAERS Safety Report 8462659-1 (Version None)
Quarter: 2012Q2

REPORT INFORMATION
  Report Type: 
  Country: None (occurrence: None)
  Receive Date: 20120619
  Receipt Date: 20120619
  Transmission Date: 20120825
  Serious: No
  Sender: FDA-Public Use
  Company Number: None

PATIENT
  Age: 27 Year
  Sex: Female
  Weight: 113.3993 kg

DRUGS (3)
  1. CYMBALTA [Suspect]
     Indication: DEPRESSION
     Dosage: 60MG QD PO
     Route: 048
  2. CYMBALTA [Suspect]
     Indication: BACK PAIN
     Dosage: 60MG QD PO
     Route: 048
  3. CYMBALTA [Suspect]
     Indication: ANXIETY
     Dosage: 60MG QD PO
     Route: 048

REACTIONS (9)
  - INSOMNIA [None]
  - PARAESTHESIA [None]
  - DIZZINESS [None]
  - IMPAIRED DRIVING ABILITY [None]
  - PALPITATIONS [None]
  - DYSSTASIA [None]
  - ACTIVITIES OF DAILY LIVING IMPAIRED [None]
  - MOOD SWINGS [None]
  - RESPIRATORY DISORDER [None]
